FAERS Safety Report 14568883 (Version 1)
Quarter: 2018Q1

REPORT INFORMATION
  Report Type: Spontaneous
  Country: JP (occurrence: JP)
  Receive Date: 20180223
  Receipt Date: 20180223
  Transmission Date: 20180509
  Serious: Yes (Other)
  Sender: FDA-Public Use
  Company Number: JP-BAYER-2017-210670

PATIENT
  Sex: Male

DRUGS (2)
  1. NEXAVAR [Suspect]
     Active Substance: SORAFENIB
     Indication: PAPILLARY THYROID CANCER
     Dosage: DAILY DOSE 600 MG
     Route: 048
  2. NEXAVAR [Suspect]
     Active Substance: SORAFENIB
     Indication: PAPILLARY THYROID CANCER
     Dosage: 400 MG, BID
     Route: 048

REACTIONS (4)
  - Malaise [Recovered/Resolved]
  - Cerebral infarction [Not Recovered/Not Resolved]
  - Hepatic function abnormal [Recovering/Resolving]
  - Diarrhoea [Recovering/Resolving]

NARRATIVE: CASE EVENT DATE: 20160324
